FAERS Safety Report 7764635-0 (Version None)
Quarter: 2011Q3

REPORT INFORMATION
  Report Type: 
  Country: None (occurrence: None)
  Receive Date: 20110921
  Receipt Date: 20110907
  Transmission Date: 20111222
  Serious: No
  Sender: FDA-Public Use
  Company Number: PHEH2011US03589

PATIENT
  Sex: Female

DRUGS (7)
  1. ALLOPURINOL [Concomitant]
     Dosage: 100 MG, UNK
  2. FISH OIL [Concomitant]
  3. MINOCYCLINE HCL [Concomitant]
     Dosage: 50 MG, UNK
  4. GLUCOSAMINE [Concomitant]
  5. TASIGNA [Suspect]
     Dosage: 300 MG, BID
  6. CENTRUM [Concomitant]
  7. ZOLOFT [Suspect]
     Dosage: 100 MG, UNK

REACTIONS (3)
  - HAEMORRHOIDS [None]
  - VAGINAL INFECTION [None]
  - DIZZINESS [None]
